FAERS Safety Report 24741933 (Version 1)
Quarter: 2024Q4

REPORT INFORMATION
  Report Type: Report from Study
  Country: US (occurrence: US)
  Receive Date: 20241217
  Receipt Date: 20241217
  Transmission Date: 20250114
  Serious: Yes (Other)
  Sender: ALEXION PHARMACEUTICALS
  Company Number: US-AstraZeneca-CH-00765396A

PATIENT

DRUGS (4)
  1. FULVESTRANT [Suspect]
     Active Substance: FULVESTRANT
     Route: 065
  2. FULVESTRANT [Suspect]
     Active Substance: FULVESTRANT
     Route: 065
  3. FULVESTRANT [Suspect]
     Active Substance: FULVESTRANT
     Route: 065
  4. FULVESTRANT [Suspect]
     Active Substance: FULVESTRANT
     Route: 065

REACTIONS (1)
  - Disease progression [Unknown]
